FAERS Safety Report 5443132-1 (Version None)
Quarter: 2007Q3

REPORT INFORMATION
  Report Type: 
  Country: None (occurrence: None)
  Receive Date: 20070830
  Receipt Date: 20070822
  Transmission Date: 20080115
  Serious: Yes (Hospitalization)
  Sender: FDA-Public Use
  Company Number: 2007BI015104

PATIENT
  Age: 64 Year
  Sex: Female
  Weight: 77.1115 kg

DRUGS (3)
  1. AVONEX [Suspect]
     Indication: MULTIPLE SCLEROSIS
     Dosage: 30 UG;QW; IM
     Route: 030
     Dates: start: 19961201, end: 20030101
  2. AVONEX [Suspect]
     Indication: MULTIPLE SCLEROSIS
     Dosage: 30 UG;QW; ,IM
     Route: 030
     Dates: start: 20030101
  3. MESTINON [Concomitant]

REACTIONS (12)
  - ASTHENIA [None]
  - BLADDER DISORDER [None]
  - CONDITION AGGRAVATED [None]
  - CONSTIPATION [None]
  - DYSPHAGIA [None]
  - DYSPNOEA [None]
  - FATIGUE [None]
  - MULTIPLE SCLEROSIS [None]
  - MYASTHENIA GRAVIS [None]
  - PAIN [None]
  - SYNCOPE [None]
  - URINARY RETENTION [None]
